FAERS Safety Report 11923537 (Version 2)
Quarter: 2016Q4

REPORT INFORMATION
  Report Type: Spontaneous
  Country: US (occurrence: US)
  Receive Date: 20160118
  Receipt Date: 20161219
  Transmission Date: 20170206
  Serious: No
  Sender: FDA-Public Use
  Company Number: US-ASTRAZENECA-2016SE01604

PATIENT
  Age: 21311 Day
  Sex: Female
  Weight: 70.8 kg

DRUGS (3)
  1. VENTOLIN [Concomitant]
     Active Substance: ALBUTEROL SULFATE
     Indication: RESPIRATORY FAILURE
     Dosage: NEBULISER
  2. TUDORZA PRESSAIR [Suspect]
     Active Substance: ACLIDINIUM BROMIDE
     Indication: CHRONIC OBSTRUCTIVE PULMONARY DISEASE
     Dosage: 400 MCG 1 PUFF TWICE DAILY
     Route: 055
     Dates: start: 20151228
  3. VENTOLIN [Concomitant]
     Active Substance: ALBUTEROL SULFATE
     Indication: CHRONIC OBSTRUCTIVE PULMONARY DISEASE
     Dosage: NEBULISER

REACTIONS (3)
  - Device malfunction [Unknown]
  - Underdose [Unknown]
  - Weight increased [Unknown]

NARRATIVE: CASE EVENT DATE: 20151228
